FAERS Safety Report 9187896 (Version 1)
Quarter: 2013Q1

REPORT INFORMATION
  Report Type: Spontaneous
  Country: US (occurrence: US)
  Receive Date: 20130325
  Receipt Date: 20130325
  Transmission Date: 20140127
  Serious: No
  Sender: FDA-Public Use
  Company Number: US-MYLANLABS-2012S1016321

PATIENT
  Age: 54 Year
  Sex: Female

DRUGS (1)
  1. FENTANYL TRANSDERMAL SYSTEM [Suspect]
     Indication: INSOMNIA
     Route: 062
     Dates: start: 20110830, end: 20110830

REACTIONS (4)
  - Substance use [Unknown]
  - Therapy naive [Unknown]
  - Off label use [Unknown]
  - Malaise [Unknown]
